FAERS Safety Report 7875067-9 (Version None)
Quarter: 2011Q4

REPORT INFORMATION
  Report Type: 
  Country: None (occurrence: None)
  Receive Date: 20111003
  Receipt Date: 20110621
  Transmission Date: 20120403
  Serious: Yes (Hospitalization, Other)
  Sender: FDA-Public Use
  Company Number: 287911USA

PATIENT
  Age: 51 Year
  Sex: Male

DRUGS (1)
  1. VENLAFAXINE [Suspect]
     Dosage: 37.5 MG (37.5 MG, 1 IN 1 D), ORAL
     Route: 048
     Dates: start: 20110618

REACTIONS (18)
  - ERUCTATION [None]
  - DYSARTHRIA [None]
  - HEMIPLEGIA [None]
  - HYPERHIDROSIS [None]
  - TREMOR [None]
  - MUSCLE SPASMS [None]
  - INFLUENZA LIKE ILLNESS [None]
  - MALAISE [None]
  - NAUSEA [None]
  - ABDOMINAL DISCOMFORT [None]
  - DECREASED APPETITE [None]
  - AGITATION [None]
  - CEREBROVASCULAR ACCIDENT [None]
  - ERYTHEMA [None]
  - COLD SWEAT [None]
  - PAIN [None]
  - HEADACHE [None]
  - PALPITATIONS [None]
